FAERS Safety Report 10417432 (Version 3)
Quarter: 2015Q1

REPORT INFORMATION
  Report Type: Report from Study
  Country: IT (occurrence: IT)
  Receive Date: 20140829
  Receipt Date: 20150218
  Transmission Date: 20150720
  Serious: Yes (Hospitalization)
  Sender: FDA-Public Use
  Company Number: IT-ROCHE-1455869

PATIENT
  Age: 78 Year
  Sex: Male
  Weight: 47 kg

DRUGS (58)
  1. BENDAMUSTINE [Suspect]
     Active Substance: BENDAMUSTINE
     Dosage: C2D2
     Route: 042
     Dates: start: 20140506, end: 20140506
  2. BENDAMUSTINE [Suspect]
     Active Substance: BENDAMUSTINE
     Dosage: C5D1
     Route: 042
     Dates: start: 20140729, end: 20140729
  3. EPREX [Concomitant]
     Active Substance: ERYTHROPOIETIN
     Indication: ANAEMIA
     Route: 058
     Dates: start: 20140630, end: 20140709
  4. EPREX [Concomitant]
     Active Substance: ERYTHROPOIETIN
     Route: 058
     Dates: start: 20140728, end: 20140829
  5. PREDNISONE. [Concomitant]
     Active Substance: PREDNISONE
     Route: 048
     Dates: start: 20140331, end: 20140404
  6. RED BLOOD CELLS [Concomitant]
     Active Substance: HUMAN RED BLOOD CELL
     Route: 042
     Dates: start: 20140428, end: 20140428
  7. RED BLOOD CELLS [Concomitant]
     Active Substance: HUMAN RED BLOOD CELL
     Route: 042
     Dates: start: 20140415, end: 20140415
  8. MEDROL [Concomitant]
     Active Substance: METHYLPREDNISOLONE
     Route: 048
     Dates: start: 20140503, end: 20140504
  9. BENDAMUSTINE [Suspect]
     Active Substance: BENDAMUSTINE
     Dosage: C3D1
     Route: 042
     Dates: start: 20140603, end: 20140603
  10. EPREX [Concomitant]
     Active Substance: ERYTHROPOIETIN
     Route: 058
     Dates: start: 20140929, end: 20141022
  11. RED BLOOD CELLS [Concomitant]
     Active Substance: HUMAN RED BLOOD CELL
     Route: 042
     Dates: start: 20140429, end: 20140429
  12. RED BLOOD CELLS [Concomitant]
     Active Substance: HUMAN RED BLOOD CELL
     Route: 042
     Dates: start: 20140516, end: 20140516
  13. RED BLOOD CELLS [Concomitant]
     Active Substance: HUMAN RED BLOOD CELL
     Route: 042
     Dates: start: 20140529, end: 20140529
  14. MEDROL [Concomitant]
     Active Substance: METHYLPREDNISOLONE
     Route: 048
     Dates: start: 20140520, end: 20140521
  15. LEVOFLOXACIN. [Concomitant]
     Active Substance: LEVOFLOXACIN
     Route: 048
     Dates: start: 20140711, end: 20140715
  16. ALLOPURINOL. [Concomitant]
     Active Substance: ALLOPURINOL
     Indication: PROPHYLAXIS
     Route: 048
     Dates: start: 20140402, end: 20140828
  17. RABEPRAZOLE [Concomitant]
     Active Substance: RABEPRAZOLE
     Indication: PROPHYLAXIS
     Route: 048
     Dates: start: 20140326
  18. MEDROL [Concomitant]
     Active Substance: METHYLPREDNISOLONE
     Indication: PSORIASIS
     Route: 048
     Dates: start: 20140429, end: 20140430
  19. MEDROL [Concomitant]
     Active Substance: METHYLPREDNISOLONE
     Route: 048
     Dates: start: 20140516, end: 20140517
  20. MEDROL [Concomitant]
     Active Substance: METHYLPREDNISOLONE
     Route: 048
     Dates: start: 20140518, end: 20140519
  21. OBINUTUZUMAB [Suspect]
     Active Substance: OBINUTUZUMAB
     Indication: CHRONIC LYMPHOCYTIC LEUKAEMIA
     Dosage: CYCLE 1 DAY 1,1000MG SPILT DOSE ON DAY 1 AND 2 OF CYCLE 1 AND ON DAY 8 AND 15- AS PER PROTOCOL
     Route: 042
     Dates: start: 20140402, end: 20140402
  22. BENDAMUSTINE [Suspect]
     Active Substance: BENDAMUSTINE
     Indication: CHRONIC LYMPHOCYTIC LEUKAEMIA
     Dosage: C1D1
     Route: 042
     Dates: start: 20140402, end: 20140402
  23. BENDAMUSTINE [Suspect]
     Active Substance: BENDAMUSTINE
     Dosage: C3D2
     Route: 042
     Dates: start: 20140604, end: 20140610
  24. LEVOFLOXACIN. [Concomitant]
     Active Substance: LEVOFLOXACIN
     Indication: PROPHYLAXIS
     Route: 048
     Dates: start: 20140617, end: 20140621
  25. LEVOFLOXACIN. [Concomitant]
     Active Substance: LEVOFLOXACIN
     Route: 048
     Dates: start: 20140513, end: 20140521
  26. EPREX [Concomitant]
     Active Substance: ERYTHROPOIETIN
     Route: 058
     Dates: start: 20140630, end: 20140710
  27. AMOXICILLIN. [Concomitant]
     Active Substance: AMOXICILLIN
     Indication: PSORIASIS
     Route: 048
     Dates: start: 20140326, end: 20140401
  28. RED BLOOD CELLS [Concomitant]
     Active Substance: HUMAN RED BLOOD CELL
     Indication: ANAEMIA
     Route: 042
     Dates: start: 20140327, end: 20140327
  29. RED BLOOD CELLS [Concomitant]
     Active Substance: HUMAN RED BLOOD CELL
     Route: 042
     Dates: start: 20140702, end: 20140702
  30. LASIX [Concomitant]
     Active Substance: FUROSEMIDE
     Indication: PROPHYLAXIS
     Dosage: DOSE  -  1FL 250 MG/25 MG
     Route: 042
     Dates: start: 20140702, end: 20140702
  31. LASIX [Concomitant]
     Active Substance: FUROSEMIDE
     Dosage: DOSE  -  1FL 250 MG/25 MG
     Route: 042
     Dates: start: 20140327, end: 20140327
  32. PARACETAMOL [Concomitant]
     Active Substance: ACETAMINOPHEN
     Route: 048
     Dates: start: 20140403, end: 20140405
  33. MACROGOL [Concomitant]
     Active Substance: POLYETHYLENE GLYCOLS
     Dosage: ONCE A DAY, AS REQUIRED
     Route: 048
     Dates: start: 20140318, end: 20140414
  34. BENDAMUSTINE [Suspect]
     Active Substance: BENDAMUSTINE
     Dosage: C4D2
     Route: 042
     Dates: start: 20140702, end: 20140702
  35. BENDAMUSTINE [Suspect]
     Active Substance: BENDAMUSTINE
     Dosage: C5D2
     Route: 042
     Dates: start: 20140730, end: 20140730
  36. TRIMETON (ITALY) [Concomitant]
     Route: 042
     Dates: start: 20140603, end: 20140603
  37. EPREX [Concomitant]
     Active Substance: ERYTHROPOIETIN
     Route: 058
     Dates: start: 20141023, end: 20150107
  38. TOTALIP [Concomitant]
     Active Substance: ATORVASTATIN
     Route: 048
     Dates: start: 20100326
  39. NEOTIGASON [Concomitant]
     Active Substance: ACITRETIN
     Indication: PSORIASIS
     Route: 048
     Dates: start: 20140115
  40. RED BLOOD CELLS [Concomitant]
     Active Substance: HUMAN RED BLOOD CELL
     Route: 042
     Dates: start: 20140530, end: 20140530
  41. MAG 2 (ITALY) [Concomitant]
     Dosage: DOSE  -  1 FL 1.5 G/10 ML
     Route: 048
     Dates: start: 20140729, end: 20140731
  42. NIMESULIDE [Concomitant]
     Active Substance: NIMESULIDE
     Indication: PROPHYLAXIS
     Dosage: ONCE A DAY, AS REQUIRED
     Route: 048
     Dates: start: 20140318, end: 20140326
  43. DEXAMETHASONE. [Concomitant]
     Active Substance: DEXAMETHASONE
     Route: 042
     Dates: start: 20140402, end: 20140402
  44. OBINUTUZUMAB [Suspect]
     Active Substance: OBINUTUZUMAB
     Dosage: 05/MAY/2014 (CYCLE 2). LAST DOSE PRIOR TO SAE 29 JUL 2014 (CYCLE 5).
     Route: 042
     Dates: start: 20140505
  45. BENDAMUSTINE [Suspect]
     Active Substance: BENDAMUSTINE
     Dosage: C2D1
     Route: 042
     Dates: start: 20140505, end: 20140505
  46. BENDAMUSTINE [Suspect]
     Active Substance: BENDAMUSTINE
     Dosage: C4D1
     Route: 042
     Dates: start: 20140701, end: 20140701
  47. LEVOFLOXACIN. [Concomitant]
     Active Substance: LEVOFLOXACIN
     Route: 048
     Dates: start: 20140911, end: 20140915
  48. EPREX [Concomitant]
     Active Substance: ERYTHROPOIETIN
     Route: 058
     Dates: start: 20140711, end: 20140727
  49. ACICLOVIR [Concomitant]
     Active Substance: ACYCLOVIR
     Indication: PROPHYLAXIS
     Route: 048
     Dates: start: 20140402, end: 20150109
  50. BACTRIM [Concomitant]
     Active Substance: SULFAMETHOXAZOLE\TRIMETHOPRIM
     Indication: PROPHYLAXIS
     Route: 048
     Dates: start: 20140402, end: 20150109
  51. MAG 2 (ITALY) [Concomitant]
     Dosage: DOSE  -  1 FL 1.5 G/10 ML
     Route: 048
     Dates: start: 20140807, end: 20140813
  52. TAZOCIN [Concomitant]
     Active Substance: PIPERACILLIN SODIUM\TAZOBACTAM SODIUM
     Route: 042
     Dates: start: 20140403, end: 20140407
  53. URBASON [Concomitant]
     Active Substance: METHYLPREDNISOLONE
     Route: 042
     Dates: start: 20140505, end: 20140505
  54. METFORMIN [Concomitant]
     Active Substance: METFORMIN HYDROCHLORIDE
     Indication: TYPE 2 DIABETES MELLITUS
     Route: 048
     Dates: start: 1989
  55. PREDNISONE. [Concomitant]
     Active Substance: PREDNISONE
     Indication: PSORIASIS
     Route: 048
     Dates: start: 20140326, end: 20140330
  56. RED BLOOD CELLS [Concomitant]
     Active Substance: HUMAN RED BLOOD CELL
     Route: 042
     Dates: start: 20140617, end: 20140618
  57. MEDROL [Concomitant]
     Active Substance: METHYLPREDNISOLONE
     Route: 048
     Dates: start: 20140501, end: 20140502
  58. TACHIDOL [Concomitant]
     Active Substance: ACETAMINOPHEN\CODEINE PHOSPHATE
     Indication: PROPHYLAXIS
     Dosage: 500MG/30MG ONCE A DAY AS REQUIRED
     Route: 048
     Dates: start: 20140318, end: 20140414

REACTIONS (1)
  - Febrile neutropenia [Recovered/Resolved]

NARRATIVE: CASE EVENT DATE: 20140815
